FAERS Safety Report 6402953-9 (Version None)
Quarter: 2009Q4

REPORT INFORMATION
  Report Type: 
  Country: None (occurrence: None)
  Receive Date: 20091016
  Receipt Date: 20091009
  Transmission Date: 20100525
  Serious: Yes (Death)
  Sender: FDA-Public Use
  Company Number: US-CELGENEUS-163-21880-09100789

PATIENT
  Sex: Male

DRUGS (2)
  1. REVLIMID [Suspect]
     Indication: MULTIPLE MYELOMA
     Route: 048
     Dates: start: 20080301, end: 20090101
  2. REVLIMID [Suspect]
     Route: 048
     Dates: start: 20080201, end: 20080301

REACTIONS (6)
  - CHEST PAIN [None]
  - DEATH [None]
  - DEVICE RELATED INFECTION [None]
  - FLUID RETENTION [None]
  - HERPES VIRUS INFECTION [None]
  - PAIN [None]
